FAERS Safety Report 10608839 (Version 1)
Quarter: 2014Q4

REPORT INFORMATION
  Report Type: Spontaneous
  Country: US (occurrence: US)
  Receive Date: 20141125
  Receipt Date: 20141125
  Transmission Date: 20150529
  Serious: No
  Sender: FDA-Public Use
  Company Number: US-GLAXOSMITHKLINE-US2014GSK006469

PATIENT
  Sex: Female

DRUGS (3)
  1. SYNTHROID [Concomitant]
     Active Substance: LEVOTHYROXINE SODIUM
     Indication: THYROID HORMONE REPLACEMENT THERAPY
  2. NICORETTE WHITE ICE MINT [Suspect]
     Active Substance: NICOTINE
     Indication: SMOKING CESSATION THERAPY
     Route: 002
  3. NICORETTE WHITE ICE MINT [Suspect]
     Active Substance: NICOTINE

REACTIONS (2)
  - Multiple allergies [Not Recovered/Not Resolved]
  - Wheezing [Not Recovered/Not Resolved]
